FAERS Safety Report 5796776-1 (Version None)
Quarter: 2008Q2

REPORT INFORMATION
  Report Type: 
  Country: None (occurrence: None)
  Receive Date: 20080630
  Receipt Date: 20080630
  Transmission Date: 20081010
  Serious: Yes (Hospitalization)
  Sender: FDA-Public Use
  Company Number: None

PATIENT
  Age: 69 Year
  Sex: Male
  Weight: 71 kg

DRUGS (15)
  1. VANCOMYCIN [Suspect]
     Indication: PLEURITIC PAIN
     Dosage: 1 GM Q12H IV BOLUS
     Route: 040
     Dates: start: 20080429, end: 20080507
  2. ZOSYN [Suspect]
     Indication: PLEURITIC PAIN
     Dosage: 3.375 GM Q6G IV BOLUS
     Route: 040
     Dates: start: 20080501, end: 20080507
  3. ASPIRIN [Concomitant]
  4. CIPROFLOXACIN [Concomitant]
  5. FUROSEMIDE [Concomitant]
  6. LEVOFLOXACIN [Concomitant]
  7. LEVOTHYROXINE SODIUM [Concomitant]
  8. MEROPENEM [Concomitant]
  9. METHYLPREDNISOLONE [Concomitant]
  10. METOPROLOL [Concomitant]
  11. OXYCODONE ER -OXYCONTIN- [Concomitant]
  12. PANTOPRAZOLE SODIUM [Concomitant]
  13. -ESOMEPRAZOLE AT HOME- [Concomitant]
  14. PIPERACILLIN AND TAZOBACTAM [Concomitant]
  15. VANCOMYCIN HCL [Concomitant]

REACTIONS (1)
  - NEPHROPATHY TOXIC [None]
